FAERS Safety Report 10522505 (Version 1)
Quarter: 2014Q4

REPORT INFORMATION
  Report Type: Spontaneous
  Country: US (occurrence: US)
  Receive Date: 20141016
  Receipt Date: 20141016
  Transmission Date: 20150528
  Serious: Yes (Hospitalization)
  Sender: FDA-Public Use
  Company Number: US-BRISTOL-MYERS SQUIBB COMPANY-21489877

PATIENT
  Age: 82 Year
  Sex: Female
  Weight: 67.12 kg

DRUGS (6)
  1. TRIAMTERENE. [Concomitant]
     Active Substance: TRIAMTERENE
  2. ELIQUIS [Suspect]
     Active Substance: APIXABAN
  3. DIGOXIN. [Concomitant]
     Active Substance: DIGOXIN
  4. GLIPIZIDE. [Concomitant]
     Active Substance: GLIPIZIDE
  5. LISINOPRIL. [Concomitant]
     Active Substance: LISINOPRIL
  6. ATENOLOL. [Concomitant]
     Active Substance: ATENOLOL

REACTIONS (5)
  - Carpal tunnel syndrome [Recovering/Resolving]
  - Throat irritation [Unknown]
  - Macule [Unknown]
  - Joint swelling [Unknown]
  - Peripheral swelling [Unknown]
